FAERS Safety Report 5465802-1 (Version None)
Quarter: 2007Q3

REPORT INFORMATION
  Report Type: 
  Country: None (occurrence: None)
  Receive Date: 20070924
  Receipt Date: 20070914
  Transmission Date: 20080115
  Serious: Yes (Other)
  Sender: FDA-Public Use
  Company Number: JP-BRISTOL-MYERS SQUIBB COMPANY-13504055

PATIENT
  Age: 63 Year
  Sex: Male

DRUGS (7)
  1. EFAVIRENZ [Suspect]
     Indication: HIV INFECTION
     Route: 048
     Dates: start: 19991015
  2. COMBIVIR [Suspect]
     Indication: HIV INFECTION
     Route: 048
     Dates: start: 20001229
  3. DICLOFENAC SODIUM [Concomitant]
  4. FAMOTIDINE [Concomitant]
  5. THYRADIN S [Concomitant]
     Indication: HYPOTHYROIDISM
     Dates: end: 20060707
  6. LOPEMIN [Concomitant]
  7. HARNAL [Concomitant]

REACTIONS (1)
  - PROSTATE CANCER [None]
